FAERS Safety Report 4762285-1 (Version None)
Quarter: 2005Q3

REPORT INFORMATION
  Report Type: 
  Country: None (occurrence: None)
  Receive Date: 20050907
  Receipt Date: 20050622
  Transmission Date: 20060218
  Serious: Yes (Other)
  Sender: FDA-Public Use
  Company Number: US-BOEHRINGER INGELHEIM PHARMACEUTICALS, INC.-2005-BP-14118BP

PATIENT
  Age: 90 Year
  Sex: Female

DRUGS (1)
  1. PERSANTINE AMPULES [Suspect]
     Indication: CARDIAC STRESS TEST
     Route: 042
     Dates: start: 20050604

REACTIONS (5)
  - BURNING SENSATION [None]
  - CELLULITIS [None]
  - DRUG ADMINISTRATION ERROR [None]
  - EXTRAVASATION [None]
  - INJECTION SITE IRRITATION [None]
